FAERS Safety Report 9304976 (Version 1)
Quarter: 2013Q2

REPORT INFORMATION
  Report Type: Spontaneous
  Country: US (occurrence: None)
  Receive Date: 20130521
  Receipt Date: 20130521
  Transmission Date: 20140414
  Serious: Yes (Life-Threatening)
  Sender: FDA-Public Use
  Company Number: None

PATIENT
  Age: 16 Year
  Sex: Female
  Weight: 50 kg

DRUGS (1)
  1. YAZ [Suspect]
     Indication: CONTRACEPTION
     Dosage: 1 DOSE PER DAY PO
     Route: 048
     Dates: start: 20130514, end: 20130516

REACTIONS (3)
  - Pain in extremity [None]
  - Pain in extremity [None]
  - Chest pain [None]
